FAERS Safety Report 7051707-1 (Version None)
Quarter: 2010Q4

REPORT INFORMATION
  Report Type: 
  Country: None (occurrence: None)
  Receive Date: 20101019
  Receipt Date: 20101015
  Transmission Date: 20110411
  Serious: Yes (Life-Threatening, Hospitalization, Other)
  Sender: FDA-Public Use
  Company Number: CO-SANOFI-AVENTIS-2010SA063237

PATIENT
  Sex: Female

DRUGS (5)
  1. TAXOTERE [Suspect]
     Route: 042
     Dates: start: 20101015, end: 20101015
  2. DEXAMETHASONE [Concomitant]
     Route: 040
     Dates: start: 20101015, end: 20101015
  3. RANITIDINE [Concomitant]
     Route: 040
     Dates: start: 20101015, end: 20101015
  4. ONDANSETRON [Concomitant]
     Route: 040
     Dates: start: 20101015, end: 20101015
  5. DIPHENHYDRAMINE [Concomitant]
     Route: 048
     Dates: start: 20101015, end: 20101015

REACTIONS (3)
  - CARDIO-RESPIRATORY ARREST [None]
  - CHEST DISCOMFORT [None]
  - DIZZINESS [None]
